FAERS Safety Report 4314437-2 (Version None)
Quarter: 2004Q1

REPORT INFORMATION
  Report Type: 
  Country: None (occurrence: None)
  Receive Date: 20040308
  Receipt Date: 20040224
  Transmission Date: 20041129
  Serious: Yes (Hospitalization)
  Sender: FDA-Public Use
  Company Number: MAG-2004-0000240

PATIENT
  Age: 71 Year
  Sex: Male

DRUGS (5)
  1. POVIDONE IODINE [Suspect]
     Indication: CHOLECYSTECTOMY
     Dosage: 1 APPLIC, SINGLE, TOPICAL
     Route: 061
     Dates: start: 20030507, end: 20030507
  2. TRACRIUM [Concomitant]
  3. DIPRIVAN (PROFOLOL) [Concomitant]
  4. SUFENTA [Concomitant]
  5. SEVORANE (SEVOFLURANE) [Concomitant]

REACTIONS (2)
  - ECZEMA [None]
  - TOXIC SKIN ERUPTION [None]
